FAERS Safety Report 21360635 (Version 5)
Quarter: 2022Q4

REPORT INFORMATION
  Report Type: Report from Study
  Country: FR (occurrence: None)
  Receive Date: 20220921
  Receipt Date: 20221222
  Transmission Date: 20230113
  Serious: Yes (Hospitalization)
  Sender: FDA-Public Use
  Company Number: FR-Eisai Medical Research-EC-2022-123967

PATIENT
  Age: 66 Year
  Sex: Male
  Weight: 101 kg

DRUGS (12)
  1. LENVATINIB [Suspect]
     Active Substance: LENVATINIB
     Indication: Clear cell renal cell carcinoma
     Dosage: STARTING DOSE AT 20 MG, FLUCTUATED DOSAGE
     Route: 048
     Dates: start: 20220819, end: 20220912
  2. LENVATINIB [Suspect]
     Active Substance: LENVATINIB
     Route: 048
     Dates: start: 20221129
  3. QUAVONLIMAB [Suspect]
     Active Substance: QUAVONLIMAB
     Indication: Clear cell renal cell carcinoma
     Dosage: MK-1308A (QUAVONLIMAB [MK-1308] 25 MG (+) PEMBROLIZUMAB [MK-3475] 400 MG )
     Route: 042
     Dates: start: 20220819, end: 20220819
  4. PEMBROLIZUMAB [Suspect]
     Active Substance: PEMBROLIZUMAB
     Dosage: MK-1308A (QUAVONLIMAB [MK-1308] 25 MG (+) PEMBROLIZUMAB [MK-3475] 400 MG )
     Route: 042
     Dates: start: 20220927
  5. PANTOPRAZOLE [Concomitant]
     Active Substance: PANTOPRAZOLE
     Dates: start: 201401
  6. KARDEGIC [Concomitant]
     Active Substance: ASPIRIN DL-LYSINE
     Dates: start: 202201
  7. PERINDOPRIL [Concomitant]
     Active Substance: PERINDOPRIL
     Dates: start: 202201
  8. BISOPROLOL [Concomitant]
     Active Substance: BISOPROLOL
     Dates: start: 202201
  9. LERCANIDIPINE [Concomitant]
     Active Substance: LERCANIDIPINE
     Dates: start: 202201, end: 20220905
  10. SMECTA [Concomitant]
     Active Substance: MONTMORILLONITE
     Dates: start: 202208, end: 20220905
  11. RACECADOTRIL [Concomitant]
     Active Substance: RACECADOTRIL
     Dates: start: 20220906
  12. INDAPAMIDE [Concomitant]
     Active Substance: INDAPAMIDE
     Dates: start: 20220906, end: 20220926

REACTIONS (1)
  - Gastric ulcer [Recovered/Resolved]

NARRATIVE: CASE EVENT DATE: 20220913
